FAERS Safety Report 11203674 (Version 3)
Quarter: 2015Q3

REPORT INFORMATION
  Report Type: Spontaneous
  Country: US (occurrence: US)
  Receive Date: 20150619
  Receipt Date: 20150714
  Transmission Date: 20151125
  Serious: Yes (Hospitalization, Other)
  Sender: FDA-Public Use
  Company Number: US-GILEAD-2015-0158845

PATIENT
  Age: 61 Year
  Sex: Female
  Weight: 50.79 kg

DRUGS (1)
  1. HARVONI [Suspect]
     Active Substance: LEDIPASVIR\SOFOSBUVIR
     Indication: HEPATITIS C
     Dosage: 1 DF, UNK
     Route: 048
     Dates: start: 20150330, end: 20150622

REACTIONS (6)
  - Anxiety [Unknown]
  - Asthenia [Unknown]
  - Dysgeusia [Unknown]
  - Constipation [Recovered/Resolved]
  - Rectal haemorrhage [Unknown]
  - Diverticulitis [Recovered/Resolved]

NARRATIVE: CASE EVENT DATE: 20150610
